FAERS Safety Report 4887081-6 (Version None)
Quarter: 2006Q1

REPORT INFORMATION
  Report Type: 
  Country: None (occurrence: None)
  Receive Date: 20060120
  Receipt Date: 20051004
  Transmission Date: 20060701
  Serious: Yes (Hospitalization)
  Sender: FDA-Public Use
  Company Number: US-MERCK-0510USA03871

PATIENT
  Age: 69 Year
  Sex: Female
  Weight: 80 kg

DRUGS (13)
  1. FOSAMAX [Concomitant]
     Indication: OSTEOPOROSIS
     Route: 065
  2. VIOXX [Suspect]
     Indication: OSTEOARTHRITIS
     Route: 048
     Dates: start: 19990827, end: 20021202
  3. VIOXX [Suspect]
     Indication: PAIN
     Route: 048
     Dates: start: 19990827, end: 20021202
  4. HYZAAR [Concomitant]
     Indication: HYPERTENSION
     Route: 065
     Dates: start: 19950101, end: 20021202
  5. GLYBURIDE [Concomitant]
     Indication: DIABETES MELLITUS
     Route: 065
     Dates: start: 20021202
  6. CELEBREX [Concomitant]
     Indication: PAIN
     Route: 065
     Dates: end: 19990827
  7. CELEBREX [Concomitant]
     Indication: RHEUMATOID ARTHRITIS
     Route: 065
     Dates: end: 19990827
  8. HYDROCODONE HYDROCHLORIDE [Concomitant]
     Indication: PAIN
     Route: 065
     Dates: start: 19950101
  9. AMITRIPTYLINE HYDROCHLORIDE [Concomitant]
     Indication: PAIN
     Route: 065
     Dates: start: 19950101
  10. FLEXERIL [Concomitant]
     Indication: PAIN
     Route: 065
     Dates: start: 20000101
  11. FLEXERIL [Concomitant]
     Indication: MUSCLE RELAXANT THERAPY
     Route: 065
     Dates: start: 20000101
  12. TOPROL-XL [Concomitant]
     Indication: HYPERTENSION
     Route: 065
     Dates: start: 20021202
  13. ALTACE [Concomitant]
     Indication: HYPERTENSION
     Route: 065
     Dates: start: 20021202

REACTIONS (4)
  - BLOOD CHOLESTEROL INCREASED [None]
  - CARDIAC FAILURE CONGESTIVE [None]
  - DEEP VEIN THROMBOSIS [None]
  - MYOCARDIAL INFARCTION [None]
